FAERS Safety Report 4966062-8 (Version None)
Quarter: 2006Q2

REPORT INFORMATION
  Report Type: 
  Country: None (occurrence: None)
  Receive Date: 20060407
  Receipt Date: 20060329
  Transmission Date: 20061013
  Serious: Yes (Hospitalization)
  Sender: FDA-Public Use
  Company Number: US-JNJFOC-20060307766

PATIENT
  Sex: Male
  Weight: 96.16 kg

DRUGS (9)
  1. REMICADE [Suspect]
     Route: 042
  2. REMICADE [Suspect]
     Indication: RHEUMATOID ARTHRITIS
     Route: 042
  3. QUININE [Concomitant]
  4. ASPIRIN [Concomitant]
  5. SIMUSTATIN [Concomitant]
  6. OMEPRAZOLE [Concomitant]
     Indication: GASTRIC DISORDER
  7. PLAVIX [Concomitant]
     Indication: ANTICOAGULANT THERAPY
  8. ATENOLOL [Concomitant]
     Indication: BLOOD PRESSURE
  9. STEROIDS [Concomitant]
     Indication: PREMEDICATION

REACTIONS (3)
  - ADVERSE DRUG REACTION [None]
  - BURNING SENSATION [None]
  - NASOPHARYNGITIS [None]
